FAERS Safety Report 6829712-7 (Version None)
Quarter: 2010Q3

REPORT INFORMATION
  Report Type: 
  Country: None (occurrence: None)
  Receive Date: 20100709
  Receipt Date: 20070628
  Transmission Date: 20110219
  Serious: No
  Sender: FDA-Public Use
  Company Number: US-PFIZER INC-2007013048

PATIENT
  Age: 76 Year
  Sex: Male
  Weight: 73.48 kg

DRUGS (4)
  1. CHANTIX [Suspect]
     Indication: SMOKING CESSATION THERAPY
     Route: 048
     Dates: start: 20070213
  2. PROSCAR [Concomitant]
     Route: 048
  3. LIPITOR [Concomitant]
     Route: 048
  4. SYNTHROID [Concomitant]
     Route: 048

REACTIONS (1)
  - INSOMNIA [None]
